FAERS Safety Report 6428001-2 (Version None)
Quarter: 2009Q4

REPORT INFORMATION
  Report Type: 
  Country: None (occurrence: None)
  Receive Date: 20091105
  Receipt Date: 20091027
  Transmission Date: 20100525
  Serious: Yes (Death, Hospitalization)
  Sender: FDA-Public Use
  Company Number: US-ROCHE-663100

PATIENT
  Sex: Female

DRUGS (1)
  1. XELODA [Suspect]
     Dosage: OTHER INDICATION: MBC; TWO WEEKS ON AND ONE WEEK OFF
     Route: 048
     Dates: start: 20090717, end: 20090907

REACTIONS (1)
  - MALIGNANT NEOPLASM PROGRESSION [None]
